FAERS Safety Report 14317299 (Version 1)
Quarter: 2017Q4

REPORT INFORMATION
  Report Type: Spontaneous
  Country: PL (occurrence: PL)
  Receive Date: 20171222
  Receipt Date: 20171222
  Transmission Date: 20180321
  Serious: Yes (Hospitalization, Other)
  Sender: FDA-Public Use
  Company Number: PHHY2017PL191714

PATIENT
  Age: 52 Year
  Sex: Male

DRUGS (1)
  1. AMOXICILLIN. [Suspect]
     Active Substance: AMOXICILLIN
     Indication: BRONCHITIS
     Dosage: UNK
     Route: 065

REACTIONS (5)
  - Haemolytic anaemia [Unknown]
  - Tachycardia [Unknown]
  - Jaundice [Unknown]
  - Asthenia [Unknown]
  - Dyspnoea exertional [Unknown]
